FAERS Safety Report 5247595-6 (Version None)
Quarter: 2007Q1

REPORT INFORMATION
  Report Type: 
  Country: None (occurrence: None)
  Receive Date: 20070227
  Receipt Date: 20070221
  Transmission Date: 20070707
  Serious: Yes (Other)
  Sender: FDA-Public Use
  Company Number: NO-AVENTIS-200711556GDDC

PATIENT
  Age: 81 Year
  Sex: Female

DRUGS (5)
  1. GLIMEPIRIDE [Suspect]
     Dosage: DOSE: UNK
  2. CALCIUM CHANNEL BLOCKERS [Suspect]
     Dosage: DOSE: UNK
  3. HYDROCHLOROTHIAZIDE [Suspect]
     Dosage: DOSE: UNK
  4. LISINOPRIL [Suspect]
     Dosage: DOSE: UNK
  5. METFORMIN HCL [Suspect]
     Dosage: DOSE: UNK

REACTIONS (2)
  - LACTIC ACIDOSIS [None]
  - RENAL FAILURE ACUTE [None]
